FAERS Safety Report 15416368 (Version 2)
Quarter: 2018Q4

REPORT INFORMATION
  Report Type: Spontaneous
  Country: ES (occurrence: ES)
  Receive Date: 20180924
  Receipt Date: 20181005
  Transmission Date: 20190204
  Serious: Yes (Life-Threatening, Hospitalization, Other)
  Sender: FDA-Public Use
  Company Number: ES-AUROBINDO-AUR-APL-2018-046291

PATIENT
  Age: 60 Year
  Sex: Female

DRUGS (3)
  1. FLECAINIDE [Suspect]
     Active Substance: FLECAINIDE
     Indication: ATRIAL FIBRILLATION
     Dosage: UNK, CHRONIC TREATMENT WITH FLECAINIDE
     Route: 065
  2. FLECAINIDE [Suspect]
     Active Substance: FLECAINIDE
     Dosage: 300 MILLIGRAM, DURING THE HAEMODIALYSIS SESSION
     Route: 065
  3. FLECAINIDE [Suspect]
     Active Substance: FLECAINIDE
     Dosage: 300 MG, RECEIVED ANOTHER 300MG DUE TO ATRIAL FIBRILATION WITH RAPID VENTRICULAR RESPONSE.
     Route: 065

REACTIONS (10)
  - Electrocardiogram QT prolonged [Recovered/Resolved]
  - Electrocardiogram QRS complex prolonged [Recovered/Resolved]
  - Syncope [Recovered/Resolved]
  - Cardio-respiratory arrest [Recovered/Resolved]
  - Hypotension [Recovered/Resolved]
  - Toxicity to various agents [Recovered/Resolved]
  - Electrocardiogram PR prolongation [Recovered/Resolved]
  - Pulseless electrical activity [Recovered/Resolved]
  - Ventricular tachycardia [Recovered/Resolved]
  - Overdose [Recovered/Resolved]
